FAERS Safety Report 5644636-9 (Version None)
Quarter: 2008Q1

REPORT INFORMATION
  Report Type: 
  Country: None (occurrence: None)
  Receive Date: 20080229
  Receipt Date: 20070423
  Transmission Date: 20080703
  Serious: No
  Sender: FDA-Public Use
  Company Number: A0648387A

PATIENT
  Age: 84 Year
  Sex: Male

DRUGS (3)
  1. VALTREX [Suspect]
     Route: 048
     Dates: start: 20070413
  2. MIRAPEX [Concomitant]
  3. LIBRIUM [Concomitant]

REACTIONS (4)
  - ABDOMINAL PAIN [None]
  - CHEST PAIN [None]
  - GASTROINTESTINAL PAIN [None]
  - RENAL PAIN [None]
